FAERS Safety Report 15802588 (Version 1)
Quarter: 2018Q4

REPORT INFORMATION
  Report Type: Spontaneous
  Country: US (occurrence: US)
  Receive Date: 20181213
  Receipt Date: 20181213
  Transmission Date: 20190205
  Serious: No
  Sender: FDA-Public Use
  Company Number: None

PATIENT
  Age: 17 Year
  Sex: Female

DRUGS (1)
  1. CYCLOSPORINE CAP 25MG MOD [Suspect]
     Active Substance: CYCLOSPORINE
     Indication: DERMATITIS CONTACT
     Route: 048
     Dates: start: 201707

REACTIONS (2)
  - Influenza like illness [None]
  - Pyrexia [None]

NARRATIVE: CASE EVENT DATE: 20181212
